FAERS Safety Report 23227714 (Version 1)
Quarter: 2023Q4

REPORT INFORMATION
  Report Type: Spontaneous
  Country: HR (occurrence: HR)
  Receive Date: 20231125
  Receipt Date: 20231125
  Transmission Date: 20240110
  Serious: Yes (Hospitalization)
  Sender: FDA-Public Use
  Company Number: HR-JNJFOC-20231158119

PATIENT
  Sex: Male

DRUGS (1)
  1. IMBRUVICA [Suspect]
     Active Substance: IBRUTINIB
     Indication: Chronic lymphocytic leukaemia
     Route: 048
     Dates: start: 202101

REACTIONS (5)
  - Deep vein thrombosis [Unknown]
  - Anaemia [Not Recovered/Not Resolved]
  - COVID-19 pneumonia [Unknown]
  - Blood creatinine increased [Unknown]
  - Chronic gastritis [Unknown]
